APPROVED DRUG PRODUCT: OXYTOCIN
Active Ingredient: OXYTOCIN
Strength: 10USP UNITS/ML (10USP UNITS/ML)
Dosage Form/Route: INJECTABLE;INJECTION
Application: N018243 | Product #001 | TE Code: AP
Applicant: HIKMA PHARMACEUTICALS USA INC
Approved: Approved Prior to Jan 1, 1982 | RLD: Yes | RS: Yes | Type: RX